FAERS Safety Report 5257293-0 (Version None)
Quarter: 2007Q1

REPORT INFORMATION
  Report Type: 
  Country: None (occurrence: None)
  Receive Date: 20070302
  Receipt Date: 20070219
  Transmission Date: 20070707
  Serious: Yes (Hospitalization)
  Sender: FDA-Public Use
  Company Number: 2007BI001368

PATIENT
  Age: 64 Year
  Sex: Female

DRUGS (1)
  1. AVONEX [Suspect]
     Indication: MULTIPLE SCLEROSIS
     Dosage: 30 UG;QW;IM
     Route: 030
     Dates: start: 19980801

REACTIONS (5)
  - ATRIAL FIBRILLATION [None]
  - CONTUSION [None]
  - HAEMORRHAGE [None]
  - IMPLANT SITE BRUISING [None]
  - INJECTION SITE HAEMORRHAGE [None]
